FAERS Safety Report 5839870-9 (Version None)
Quarter: 2008Q3

REPORT INFORMATION
  Report Type: 
  Country: None (occurrence: None)
  Receive Date: 20080811
  Receipt Date: 20080731
  Transmission Date: 20090109
  Serious: Yes (Other)
  Sender: FDA-Public Use
  Company Number: US-BAYER-200813120BCC

PATIENT
  Age: 47 Year
  Sex: Female
  Weight: 52 kg

DRUGS (3)
  1. ALEVE (CAPLET) [Suspect]
     Indication: MYALGIA
     Dosage: AS USED: 440-220 MG  UNIT DOSE: 220 MG
     Route: 048
     Dates: start: 20080725, end: 20080725
  2. ALEVE (CAPLET) [Suspect]
     Dosage: UNIT DOSE: 220 MG
     Route: 048
     Dates: start: 20080726, end: 20080728
  3. CENTRUM VITAMINS [Concomitant]

REACTIONS (3)
  - HAEMATOCHEZIA [None]
  - RECTAL HAEMORRHAGE [None]
  - STOMACH DISCOMFORT [None]
